FAERS Safety Report 6912234-2 (Version None)
Quarter: 2010Q3

REPORT INFORMATION
  Report Type: 
  Country: None (occurrence: None)
  Receive Date: 20100806
  Receipt Date: 20080219
  Transmission Date: 20110219
  Serious: No
  Sender: FDA-Public Use
  Company Number: US-PFIZER INC-2007103433

PATIENT
  Sex: Female
  Weight: 54.43 kg

DRUGS (5)
  1. DETROL LA [Suspect]
     Indication: POLLAKIURIA
     Dates: start: 20050101
  2. DETROL LA [Interacting]
     Indication: MICTURITION URGENCY
  3. ARICEPT [Interacting]
     Indication: DEMENTIA
     Dates: start: 20071001
  4. LEVOTHROID [Concomitant]
  5. VITAMIN TAB [Concomitant]

REACTIONS (4)
  - DRUG INEFFECTIVE [None]
  - DRUG INTERACTION [None]
  - MICTURITION URGENCY [None]
  - POLLAKIURIA [None]
